FAERS Safety Report 8122379-X (Version None)
Quarter: 2012Q1

REPORT INFORMATION
  Report Type: 
  Country: None (occurrence: None)
  Receive Date: 20120208
  Receipt Date: 20120206
  Transmission Date: 20120608
  Serious: Yes (Hospitalization, Disabling)
  Sender: FDA-Public Use
  Company Number: US-GLAXOSMITHKLINE-A0956917A

PATIENT
  Age: 49 Year
  Sex: Male

DRUGS (3)
  1. CLONAZEPAM [Concomitant]
  2. LAMICTAL [Suspect]
     Indication: EPILEPSY
     Dosage: 200MG TWICE PER DAY
     Route: 048
     Dates: start: 20110601
  3. DILANTIN [Concomitant]
     Dosage: 100MG THREE TIMES PER DAY

REACTIONS (7)
  - CONVULSION [None]
  - PAIN [None]
  - AURA [None]
  - FEELING ABNORMAL [None]
  - MUSCULAR WEAKNESS [None]
  - MOUTH INJURY [None]
  - DRUG PRESCRIBING ERROR [None]
